FAERS Safety Report 14269959 (Version 1)
Quarter: 2017Q4

REPORT INFORMATION
  Report Type: Spontaneous
  Country: NO (occurrence: NO)
  Receive Date: 20171211
  Receipt Date: 20171211
  Transmission Date: 20180321
  Serious: Yes (Other)
  Sender: FDA-Public Use
  Company Number: NO-OTSUKA-2015_015397

PATIENT
  Age: 20 Year
  Sex: Male

DRUGS (3)
  1. ABILIFY MAINTENA [Suspect]
     Active Substance: ARIPIPRAZOLE
     Indication: DYSPHONIA
     Dosage: 300 MG, QM
     Route: 030
     Dates: start: 20151218
  2. ABILIFY [Suspect]
     Active Substance: ARIPIPRAZOLE
     Indication: DEPRESSION
     Dosage: 15 MG, UNK
     Route: 048
     Dates: start: 20151218
  3. ABILIFY MAINTENA [Suspect]
     Active Substance: ARIPIPRAZOLE
     Indication: DEPRESSION
     Dosage: 400 MG, QM
     Route: 030
     Dates: start: 20150911, end: 20151104

REACTIONS (3)
  - Priapism [Recovered/Resolved]
  - Off label use [Unknown]
  - Erectile dysfunction [Recovered/Resolved]

NARRATIVE: CASE EVENT DATE: 20151115
